FAERS Safety Report 8827432 (Version 1)
Quarter: 2012Q4

REPORT INFORMATION
  Report Type: 
  Country: US (occurrence: US)
  Receive Date: 20121005
  Receipt Date: 20121005
  Transmission Date: 20130627
  Serious: No
  Sender: FDA-Public Use
  Company Number: US-BRISTOL-MYERS SQUIBB COMPANY-16594616

PATIENT
  Sex: Male

DRUGS (6)
  1. AVAPRO [Suspect]
     Dosage: 1 DF = pills
  2. INDERAL [Concomitant]
  3. SYNTHROID [Concomitant]
  4. METFORMIN [Concomitant]
  5. CRESTOR [Concomitant]
  6. EXENATIDE [Concomitant]

REACTIONS (2)
  - Hypertension [Unknown]
  - Product quality issue [Unknown]
